FAERS Safety Report 16507605 (Version 1)
Quarter: 2019Q3

REPORT INFORMATION
  Report Type: Spontaneous
  Country: US (occurrence: US)
  Receive Date: 20190702
  Receipt Date: 20190702
  Transmission Date: 20191004
  Serious: No
  Sender: FDA-Public Use
  Company Number: US-ASTRAZENECA-2019SE92333

PATIENT
  Sex: Male

DRUGS (7)
  1. SEROQUEL [Suspect]
     Active Substance: QUETIAPINE FUMARATE
     Indication: SOMNOLENCE
     Dosage: DAILY
     Route: 048
     Dates: start: 20190508
  2. MELATONIN [Concomitant]
     Active Substance: MELATONIN
     Dosage: UNKNOWN
     Route: 065
  3. DOCUSATE SODIUM. [Concomitant]
     Active Substance: DOCUSATE SODIUM
     Dosage: UNKNOWN
     Route: 065
  4. ENOXAPARIN [Concomitant]
     Active Substance: ENOXAPARIN
     Dosage: UNKNOWN
     Route: 065
  5. KETOROLAC [Concomitant]
     Active Substance: KETOROLAC TROMETHAMINE
     Dosage: UNKNOWN AS REQUIRED
     Route: 065
  6. VANCOMYCIN [Concomitant]
     Active Substance: VANCOMYCIN
     Dosage: UNKNOWN
     Route: 065
  7. DONEPEZIL. [Concomitant]
     Active Substance: DONEPEZIL
     Dosage: AT NIGHT
     Route: 048

REACTIONS (3)
  - Disorientation [Unknown]
  - Cognitive disorder [Not Recovered/Not Resolved]
  - Confusional state [Unknown]
